FAERS Safety Report 5056538-X (Version None)
Quarter: 2006Q3

REPORT INFORMATION
  Report Type: 
  Country: None (occurrence: None)
  Receive Date: 20060714
  Receipt Date: 20060427
  Transmission Date: 20061208
  Serious: No
  Sender: FDA-Public Use
  Company Number: 2006-027

PATIENT
  Sex: Male
  Weight: 3.99 kg

DRUGS (1)
  1. PHYTONADIONE [Suspect]
     Indication: PROPHYLAXIS
     Dosage: 1 MG, 1X, 1M
     Dates: start: 20060314

REACTIONS (4)
  - DRUG ADMINISTRATION ERROR [None]
  - INJECTION SITE REACTION [None]
  - PHARMACEUTICAL PRODUCT COMPLAINT [None]
  - SKIN LACERATION [None]
